FAERS Safety Report 11654061 (Version 2)
Quarter: 2016Q1

REPORT INFORMATION
  Report Type: Report from Study
  Country: US (occurrence: US)
  Receive Date: 20151023
  Receipt Date: 20160229
  Transmission Date: 20160525
  Serious: No
  Sender: FDA-Public Use
  Company Number: US-AMGEN-USASP2015110487

PATIENT
  Age: 73 Year
  Sex: Female

DRUGS (1)
  1. ENBREL [Suspect]
     Active Substance: ETANERCEPT
     Indication: RHEUMATOID ARTHRITIS
     Dosage: 50 MG, QWK
     Route: 065
     Dates: start: 2013

REACTIONS (9)
  - Alopecia [Unknown]
  - Dizziness [Unknown]
  - Chills [Unknown]
  - Device issue [Unknown]
  - Confusional state [Unknown]
  - Headache [Unknown]
  - Ear pain [Unknown]
  - Drug dose omission [Unknown]
  - Fatigue [Unknown]
